FAERS Safety Report 22360888 (Version 1)
Quarter: 2023Q2

REPORT INFORMATION
  Report Type: Spontaneous
  Country: US (occurrence: None)
  Receive Date: 20230523
  Receipt Date: 20230523
  Transmission Date: 20230721
  Serious: No
  Sender: FDA-Public Use
  Company Number: None

PATIENT
  Age: 65 Year
  Sex: Female
  Weight: 113.4 kg

DRUGS (14)
  1. KEVZARA [Suspect]
     Active Substance: SARILUMAB
     Dosage: OTHER FREQUENCY : EVERY 2 WEEKS;?
     Route: 058
     Dates: start: 20230504
  2. ALBUTEROL SULFATE [Concomitant]
  3. CALCIUM PLUS D3 [Concomitant]
  4. CLONAZEPAM [Concomitant]
     Active Substance: CLONAZEPAM
  5. CVS FOLIC ACID [Concomitant]
  6. EQL OMEPRAZOLE [Concomitant]
  7. LAMOTRIGINE EXTENDED RELEASE [Concomitant]
     Active Substance: LAMOTRIGINE
  8. METFORMIN HYDROCHLORIDE [Concomitant]
     Active Substance: METFORMIN HYDROCHLORIDE
  9. METHOTREXATE [Concomitant]
     Active Substance: METHOTREXATE
  10. NETTLE LEAF ORAL [Concomitant]
  11. POTASSIUM CITRATE [Concomitant]
     Active Substance: POTASSIUM CITRATE
  12. PREDNISONE [Concomitant]
     Active Substance: PREDNISONE
  13. VITAMIN A [Concomitant]
     Active Substance: VITAMIN A
  14. VITAMIN D3 EXTRA STRENGTH [Concomitant]

REACTIONS (2)
  - Injection related reaction [None]
  - Erythema [None]
